FAERS Safety Report 23952919 (Version 2)
Quarter: 2024Q3

REPORT INFORMATION
  Report Type: Spontaneous
  Country: US (occurrence: US)
  Receive Date: 20240607
  Receipt Date: 20240828
  Transmission Date: 20241016
  Serious: No
  Sender: SANOFI AVENTIS
  Company Number: US-SA-SAC20240605000354

PATIENT
  Sex: Female

DRUGS (3)
  1. DUPIXENT [Suspect]
     Active Substance: DUPILUMAB
     Indication: Dermatitis atopic
     Dosage: 300 MG, QOW
     Route: 058
  2. DUPIXENT [Suspect]
     Active Substance: DUPILUMAB
     Indication: Drug therapy
  3. HALOBETASOL [Concomitant]
     Active Substance: HALOBETASOL

REACTIONS (5)
  - Injection site pruritus [Not Recovered/Not Resolved]
  - Pain [Unknown]
  - Burning sensation [Unknown]
  - Rash macular [Unknown]
  - Dermatitis atopic [Unknown]
